FAERS Safety Report 5780300-3 (Version None)
Quarter: 2008Q2

REPORT INFORMATION
  Report Type: 
  Country: None (occurrence: None)
  Receive Date: 20080620
  Receipt Date: 20080611
  Transmission Date: 20081010
  Serious: Yes (Other)
  Sender: FDA-Public Use
  Company Number: US-WYE-H02535208

PATIENT
  Sex: Male
  Weight: 77.5 kg

DRUGS (4)
  1. HCV-796 [Suspect]
     Indication: HEPATITIS C
     Dosage: UNKNOWN
     Route: 048
     Dates: start: 20070321, end: 20070101
  2. PEG-INTRON [Concomitant]
     Indication: HEPATITIS C
     Dosage: UNKNOWN
     Route: 058
     Dates: start: 20070321, end: 20070101
  3. REBETOL [Concomitant]
     Indication: HEPATITIS C
     Dosage: UNKNOWN
     Dates: start: 20070321, end: 20070101
  4. IBUROFEN [Concomitant]
     Indication: BACK PAIN
     Dosage: AS NEEDED
     Dates: start: 20040101

REACTIONS (1)
  - ASPARTATE AMINOTRANSFERASE INCREASED [None]
